FAERS Safety Report 17040248 (Version 14)
Quarter: 2022Q2

REPORT INFORMATION
  Report Type: Report from Study
  Country: CA (occurrence: CA)
  Receive Date: 20191116
  Receipt Date: 20220512
  Transmission Date: 20220720
  Serious: Yes (Other)
  Sender: FDA-Public Use
  Company Number: PHHY2013CA133691

PATIENT
  Age: 27 Year
  Sex: Female

DRUGS (22)
  1. SANDOSTATIN [Suspect]
     Active Substance: OCTREOTIDE ACETATE
     Indication: Adenoma benign
     Dosage: UNK, ONCE/SINGLE
     Route: 058
     Dates: start: 20131017
  2. SANDOSTATIN [Suspect]
     Active Substance: OCTREOTIDE ACETATE
  3. SANDOSTATIN [Suspect]
     Active Substance: OCTREOTIDE ACETATE
  4. SANDOSTATIN LAR DEPOT [Suspect]
     Active Substance: OCTREOTIDE ACETATE
     Indication: Adenoma benign
     Dosage: 30 MG, Q4W EVERY 4 WEEK
     Route: 030
     Dates: start: 20131023
  5. SANDOSTATIN LAR DEPOT [Suspect]
     Active Substance: OCTREOTIDE ACETATE
     Dosage: 30 MG, Q4W (EVERY 28 DAYS)
     Route: 030
     Dates: start: 20140509, end: 20140509
  6. SANDOSTATIN LAR DEPOT [Suspect]
     Active Substance: OCTREOTIDE ACETATE
     Dosage: 20 MG, EVERY 4 WEEKS
     Route: 030
     Dates: start: 20150529
  7. SANDOSTATIN LAR DEPOT [Suspect]
     Active Substance: OCTREOTIDE ACETATE
     Dosage: 30 MG, EVERY 4 WEEKS
     Route: 030
     Dates: start: 20151015
  8. SANDOSTATIN LAR DEPOT [Suspect]
     Active Substance: OCTREOTIDE ACETATE
     Dosage: 30 MG, EVERY 4 WEEKS
     Route: 030
     Dates: start: 20151102
  9. SANDOSTATIN LAR DEPOT [Suspect]
     Active Substance: OCTREOTIDE ACETATE
     Dosage: 20 MG, QMO
     Route: 030
     Dates: start: 20181001
  10. SANDOSTATIN LAR DEPOT [Suspect]
     Active Substance: OCTREOTIDE ACETATE
     Dosage: 10 MG, Q4W
     Route: 030
     Dates: start: 20200813
  11. SANDOSTATIN LAR DEPOT [Suspect]
     Active Substance: OCTREOTIDE ACETATE
     Dosage: 10 MG 6 WEEKS
     Route: 030
  12. CYTOMEL [Suspect]
     Active Substance: LIOTHYRONINE SODIUM
     Indication: Product used for unknown indication
     Dosage: UNK, BID
     Route: 065
  13. VITAMIN D [Concomitant]
     Active Substance: VITAMIN D NOS
     Indication: Product used for unknown indication
     Dosage: 1000 IU, QD
     Route: 048
  14. TAPAZOL [Concomitant]
     Indication: Product used for unknown indication
     Dosage: UNK
     Route: 065
     Dates: end: 20131126
  15. SYNTHROID [Concomitant]
     Active Substance: LEVOTHYROXINE SODIUM
     Indication: Product used for unknown indication
     Dosage: 0.75 MG, QD
     Route: 048
     Dates: start: 2017
  16. SYNTHROID [Concomitant]
     Active Substance: LEVOTHYROXINE SODIUM
     Dosage: 1 MG, QD
     Route: 048
     Dates: start: 20180221
  17. SYNTHROID [Concomitant]
     Active Substance: LEVOTHYROXINE SODIUM
     Dosage: 1.37 MG, QD
     Route: 048
  18. SYNTHROID [Concomitant]
     Active Substance: LEVOTHYROXINE SODIUM
     Dosage: 1.5 MG, UNK
     Route: 048
  19. SYNTHROID [Concomitant]
     Active Substance: LEVOTHYROXINE SODIUM
     Dosage: 1.37 MG, QD
     Route: 048
  20. SYNTHROID [Concomitant]
     Active Substance: LEVOTHYROXINE SODIUM
     Dosage: 112 UG, UNK
     Route: 065
  21. MEDROXYPROGESTERONE ACETATE [Concomitant]
     Active Substance: MEDROXYPROGESTERONE ACETATE
     Indication: Product used for unknown indication
     Dosage: UNK UNK, QD
     Route: 048
  22. ESTRADIOL [Concomitant]
     Active Substance: ESTRADIOL
     Indication: Product used for unknown indication
     Dosage: 75 UG, Q2W (TWICE/WEEK)
     Route: 065

REACTIONS (49)
  - Hypothyroidism [Not Recovered/Not Resolved]
  - Pituitary tumour [Unknown]
  - Neoplasm progression [Unknown]
  - Myalgia [Unknown]
  - Musculoskeletal stiffness [Unknown]
  - Anaemia [Unknown]
  - Body temperature decreased [Unknown]
  - Gastroenteritis [Recovered/Resolved]
  - Infection [Unknown]
  - Chills [Recovered/Resolved]
  - Gastric dilatation [Unknown]
  - Frequent bowel movements [Unknown]
  - Stress [Unknown]
  - Pulse abnormal [Unknown]
  - Insulin-like growth factor increased [Unknown]
  - Nasopharyngitis [Recovering/Resolving]
  - Oropharyngeal pain [Recovered/Resolved]
  - Nasal congestion [Recovering/Resolving]
  - Rhinorrhoea [Recovering/Resolving]
  - Cough [Recovering/Resolving]
  - Productive cough [Not Recovered/Not Resolved]
  - Sputum discoloured [Not Recovered/Not Resolved]
  - Chalazion [Unknown]
  - Fatigue [Unknown]
  - Blood pressure increased [Unknown]
  - Papillophlebitis [Unknown]
  - Vision blurred [Unknown]
  - Venous thrombosis [Recovering/Resolving]
  - Eye oedema [Unknown]
  - Vomiting [Recovered/Resolved]
  - Abdominal pain [Recovered/Resolved]
  - Abdominal distension [Recovered/Resolved]
  - Diarrhoea [Recovered/Resolved]
  - Nausea [Recovered/Resolved]
  - Flatulence [Unknown]
  - Asthenia [Unknown]
  - Blood glucose decreased [Recovered/Resolved]
  - Blood pressure decreased [Unknown]
  - Gastrointestinal disorder [Unknown]
  - Nausea [Recovered/Resolved]
  - Vomiting [Recovered/Resolved]
  - Adenoma benign [Unknown]
  - Injection site pain [Unknown]
  - Injection site mass [Unknown]
  - Nausea [Unknown]
  - Vomiting [Unknown]
  - Diarrhoea [Unknown]
  - Needle issue [Unknown]
  - Blood growth hormone decreased [Unknown]

NARRATIVE: CASE EVENT DATE: 20131023
